FAERS Safety Report 4868099-6 (Version None)
Quarter: 2005Q4

REPORT INFORMATION
  Report Type: 
  Country: None (occurrence: None)
  Receive Date: 20051229
  Receipt Date: 20050512
  Transmission Date: 20060501
  Serious: Yes (Hospitalization)
  Sender: FDA-Public Use
  Company Number: PHBS2005VE06862

PATIENT
  Sex: Female

DRUGS (6)
  1. FORADIL [Suspect]
     Dosage: UNK, UNK
  2. MIFLONIDE [Suspect]
  3. BERODUAL [Concomitant]
     Dates: start: 19950101, end: 20040101
  4. BERODUAL [Concomitant]
     Dosage: UNK, BID
     Dates: start: 20050301
  5. BERODUAL [Concomitant]
     Dosage: UNK, QID
  6. TEOBID [Concomitant]
     Dates: start: 19950101

REACTIONS (3)
  - CARDIAC DISORDER [None]
  - CONDITION AGGRAVATED [None]
  - DRUG INEFFECTIVE [None]
